FAERS Safety Report 22182779 (Version 2)
Quarter: 2023Q2

REPORT INFORMATION
  Report Type: Report from Study
  Country: US (occurrence: US)
  Receive Date: 20230406
  Receipt Date: 20230411
  Transmission Date: 20230722
  Serious: No
  Sender: FDA-Public Use
  Company Number: US-002147023-NVSC2023US076214

PATIENT
  Sex: Female

DRUGS (2)
  1. ATORVASTATIN [Suspect]
     Active Substance: ATORVASTATIN
     Indication: Product used for unknown indication
     Dosage: UNK
     Route: 048
  2. LISINOPRIL [Suspect]
     Active Substance: LISINOPRIL
     Indication: Product used for unknown indication
     Dosage: UNK
     Route: 048

REACTIONS (8)
  - Skin haemorrhage [Unknown]
  - Skin lesion [Unknown]
  - Seborrhoeic keratosis [Unknown]
  - Papule [Unknown]
  - Skin plaque [Unknown]
  - Skin papilloma [Unknown]
  - Cyst [Unknown]
  - Skin discolouration [Unknown]
